FAERS Safety Report 10945234 (Version 2)
Quarter: 2015Q2

REPORT INFORMATION
  Report Type: Report from Study
  Country: BR (occurrence: BR)
  Receive Date: 20150323
  Receipt Date: 20150402
  Transmission Date: 20150821
  Serious: Yes (Disabling)
  Sender: FDA-Public Use
  Company Number: BR-NOVOPROD-442055

PATIENT
  Age: 68 Year
  Sex: Male
  Weight: 83.5 kg

DRUGS (1)
  1. LIRAGLUTIDE FLEXPEN [Suspect]
     Active Substance: LIRAGLUTIDE
     Indication: TYPE 2 DIABETES MELLITUS
     Dosage: 1.8 MG, UNK
     Route: 058
     Dates: start: 20111220

REACTIONS (1)
  - Limb traumatic amputation [Recovered/Resolved]

NARRATIVE: CASE EVENT DATE: 20150128
